FAERS Safety Report 6932158-4 (Version None)
Quarter: 2010Q3

REPORT INFORMATION
  Report Type: 
  Country: None (occurrence: None)
  Receive Date: 20100819
  Receipt Date: 20100813
  Transmission Date: 20110219
  Serious: Yes (Hospitalization)
  Sender: FDA-Public Use
  Company Number: B0665168A

PATIENT
  Sex: Female

DRUGS (3)
  1. LAMICTAL [Suspect]
     Indication: EPILEPSY
     Dosage: 110MG PER DAY
     Route: 048
     Dates: start: 20081229, end: 20100720
  2. LAMICTAL [Suspect]
     Dosage: 110MG PER DAY
     Route: 048
     Dates: start: 20100721
  3. RIVOTRIL [Concomitant]
     Dosage: 1MG PER DAY
     Route: 048
     Dates: start: 20090901

REACTIONS (3)
  - ASTHENIA [None]
  - DIZZINESS [None]
  - NAUSEA [None]
